FAERS Safety Report 8036139-1 (Version None)
Quarter: 2012Q1

REPORT INFORMATION
  Report Type: 
  Country: None (occurrence: None)
  Receive Date: 20120106
  Receipt Date: 20111228
  Transmission Date: 20120608
  Serious: Yes (Life-Threatening, Hospitalization)
  Sender: FDA-Public Use
  Company Number: 2011SP059951

PATIENT
  Age: 26 Year
  Sex: Male
  Weight: 70 kg

DRUGS (12)
  1. PREDNISONE TAB [Concomitant]
  2. DESLORATADINE [Suspect]
     Indication: SKIN DISORDER
     Dosage: PO 3 F;PO
     Route: 048
     Dates: start: 20111015, end: 20111020
  3. DESLORATADINE [Suspect]
     Indication: PRURITUS
     Dosage: PO 3 F;PO
     Route: 048
     Dates: start: 20111015, end: 20111020
  4. DESLORATADINE [Suspect]
     Indication: SKIN DISORDER
     Dosage: PO 3 F;PO
     Route: 048
     Dates: start: 20111101, end: 20111101
  5. DESLORATADINE [Suspect]
     Indication: PRURITUS
     Dosage: PO 3 F;PO
     Route: 048
     Dates: start: 20111101, end: 20111101
  6. KETOPROFEN [Suspect]
     Indication: PRODUCT USED FOR UNKNOWN INDICATION
     Dosage: 1 DF;QW;CUT
     Route: 003
     Dates: start: 20090101, end: 20111101
  7. PYOSTACINE (PRISTINAMYCIN) [Suspect]
     Indication: PRURITUS
     Dosage: 1DF;TID;PO
     Route: 048
     Dates: start: 20111101, end: 20111101
  8. PYOSTACINE (PRISTINAMYCIN) [Suspect]
     Indication: SKIN DISORDER
     Dosage: 1DF;TID;PO
     Route: 048
     Dates: start: 20111101, end: 20111101
  9. PYOSTACINE (PRISTINAMYCIN) [Suspect]
     Indication: PRURITUS
     Dosage: 1DF;TID;PO
     Route: 048
     Dates: start: 20111015, end: 20111020
  10. PYOSTACINE (PRISTINAMYCIN) [Suspect]
     Indication: SKIN DISORDER
     Dosage: 1DF;TID;PO
     Route: 048
     Dates: start: 20111015, end: 20111020
  11. ZOVIRAX [Concomitant]
  12. VALACYCLOVIR HYDROCHLORIDE [Concomitant]

REACTIONS (5)
  - EJECTION FRACTION DECREASED [None]
  - ALLERGIC MYOCARDITIS [None]
  - VENTRICULAR ARRHYTHMIA [None]
  - SOMNOLENCE [None]
  - DRUG RASH WITH EOSINOPHILIA AND SYSTEMIC SYMPTOMS [None]
